FAERS Safety Report 8113572-0 (Version None)
Quarter: 2012Q1

REPORT INFORMATION
  Report Type: 
  Country: None (occurrence: None)
  Receive Date: 20120203
  Receipt Date: 20120125
  Transmission Date: 20120608
  Serious: Yes (Death, Hospitalization)
  Sender: FDA-Public Use
  Company Number: JP-NAPPMUNDI-MAG-2012-0002030

PATIENT
  Age: 82 Year
  Sex: Male

DRUGS (4)
  1. BUPRENORPHINE [Suspect]
     Indication: HYPOAESTHESIA
     Dosage: 5 MCG, Q1H
     Route: 062
     Dates: start: 20111207, end: 20111220
  2. LYRICA [Concomitant]
     Indication: HYPOAESTHESIA
     Dosage: 75 MG, DAILY
     Route: 048
     Dates: start: 20110318, end: 20111220
  3. KINEDAK [Concomitant]
     Indication: DIABETES MELLITUS
     Dosage: 150 MG, DAILY
     Route: 048
     Dates: start: 20110706, end: 20111220
  4. WARFARIN SODIUM [Concomitant]
     Dosage: 2 MG, DAILY
     Route: 048
     Dates: start: 20031112, end: 20111220

REACTIONS (2)
  - DEATH [None]
  - HAEMATEMESIS [None]
